FAERS Safety Report 19997520 (Version 1)
Quarter: 2021Q4

REPORT INFORMATION
  Report Type: Spontaneous
  Country: DE (occurrence: DE)
  Receive Date: 20211026
  Receipt Date: 20211026
  Transmission Date: 20220303
  Serious: Yes (Other)
  Sender: FDA-Public Use
  Company Number: None

PATIENT
  Age: 40 Year
  Sex: Male
  Weight: 110 kg

DRUGS (6)
  1. CLOZAPINE [Suspect]
     Active Substance: CLOZAPINE
     Indication: Schizophrenia
     Dosage: 250 MILLIGRAM, QD (EINNAHME SEIT 12 JAHREN; 1 X T?GL; 2011 (400) - 2021 (250) )
  2. CLOZAPINE [Suspect]
     Active Substance: CLOZAPINE
     Dosage: 200 MILLIGRAM, QD (1X T?GL.; CLOZAPIN (GENERIKUM)  )
  3. CLOZAPINE [Suspect]
     Active Substance: CLOZAPINE
     Dosage: 400 MILLIGRAM, QD (1X T?GL; LEPONEX   )
     Dates: start: 2011
  4. METOPROLOL [Concomitant]
     Active Substance: METOPROLOL
     Indication: Tachycardia
     Dosage: UNK
  5. PROMETHAZINE HYDROCHLORIDE [Concomitant]
     Active Substance: PROMETHAZINE HYDROCHLORIDE
     Indication: Product used for unknown indication
     Dosage: 25 MILLIGRAM, PRN (25 MG/ ZUM NACHT; NIMMT ER NUR SEHR SELTEN)
  6. PIPAMPERONE HYDROCHLORIDE [Concomitant]
     Active Substance: PIPAMPERONE HYDROCHLORIDE
     Indication: Product used for unknown indication
     Dosage: UNK, PRN (NIMMT ER NUR SEHR SELTEN)

REACTIONS (5)
  - Leukopenia [Recovered/Resolved]
  - Weight increased [Not Recovered/Not Resolved]
  - Tachycardia [Not Recovered/Not Resolved]
  - Salivary hypersecretion [Not Recovered/Not Resolved]
  - Obesity [Not Recovered/Not Resolved]
